FAERS Safety Report 10227394 (Version 1)
Quarter: 2014Q2

REPORT INFORMATION
  Report Type: Spontaneous
  Country: US (occurrence: US)
  Receive Date: 20140610
  Receipt Date: 20140610
  Transmission Date: 20141212
  Serious: No
  Sender: FDA-Public Use
  Company Number: US-PFIZER INC-2014156007

PATIENT
  Age: 52 Year
  Sex: Female

DRUGS (5)
  1. XANAX [Suspect]
     Dosage: UNK
  2. IBUPROFEN [Suspect]
     Dosage: UNK
  3. ETODOLAC [Suspect]
     Dosage: UNK
  4. BENADRYL [Suspect]
     Dosage: UNK
  5. ALEVE [Suspect]
     Dosage: UNK

REACTIONS (1)
  - Drug hypersensitivity [Unknown]
